FAERS Safety Report 5649549-4 (Version None)
Quarter: 2008Q1

REPORT INFORMATION
  Report Type: 
  Country: None (occurrence: None)
  Receive Date: 20080304
  Receipt Date: 20080221
  Transmission Date: 20080703
  Serious: Yes (Other)
  Sender: FDA-Public Use
  Company Number: US-PFIZER INC-2008017166

PATIENT
  Age: 46 Year
  Sex: Female

DRUGS (6)
  1. NEURONTIN [Suspect]
     Indication: COMPLEX REGIONAL PAIN SYNDROME
     Dosage: DAILY DOSE:2100MG
  2. MOTRIN [Concomitant]
     Dosage: DAILY DOSE:800MG
  3. CORGARD [Concomitant]
     Indication: HYPERTENSION
     Dosage: DAILY DOSE:20MG
  4. ESTRATEST [Concomitant]
  5. MAXALT [Concomitant]
     Indication: MIGRAINE
  6. VALIUM [Concomitant]

REACTIONS (8)
  - ALOPECIA [None]
  - ARACHNOID CYST [None]
  - ATROPHY [None]
  - CHOREA [None]
  - JOINT RANGE OF MOTION DECREASED [None]
  - OEDEMA [None]
  - SKIN DISCOLOURATION [None]
  - STRESS [None]
